FAERS Safety Report 6189282-6 (Version None)
Quarter: 2009Q2

REPORT INFORMATION
  Report Type: 
  Country: None (occurrence: None)
  Receive Date: 20090512
  Receipt Date: 20090429
  Transmission Date: 20091009
  Serious: Yes (Other)
  Sender: FDA-Public Use
  Company Number: 230868K08USA

PATIENT
  Age: 54 Year
  Sex: Female
  Weight: 77 kg

DRUGS (4)
  1. REBIF [Suspect]
     Indication: MULTIPLE SCLEROSIS
     Dosage: 44 MCG, 3 IN 1 WEEKS, SUBCUTANEOUS
     Route: 058
     Dates: start: 20030827
  2. CALCIUM (CALCIUM-SANDOZ) [Concomitant]
  3. FISH OIL (FISH OIL) [Concomitant]
  4. MULTIVITAMIN (MULTIVITAMIN) [Concomitant]

REACTIONS (3)
  - HIP FRACTURE [None]
  - IMPAIRED HEALING [None]
  - INJECTION SITE REACTION [None]
